FAERS Safety Report 6260762-8 (Version None)
Quarter: 2009Q3

REPORT INFORMATION
  Report Type: 
  Country: None (occurrence: None)
  Receive Date: 20090708
  Receipt Date: 20090630
  Transmission Date: 20100115
  Serious: Yes (Other)
  Sender: FDA-Public Use
  Company Number: US-AMGEN-QUU351905

PATIENT
  Sex: Female
  Weight: 99 kg

DRUGS (7)
  1. ENBREL [Suspect]
     Indication: RHEUMATOID ARTHRITIS
     Route: 058
     Dates: start: 20090320, end: 20090530
  2. PRILOSEC [Concomitant]
  3. SINGULAIR [Concomitant]
  4. ALLEGRA [Concomitant]
  5. ULTRAM [Concomitant]
  6. ATENDOL [Concomitant]
  7. PREMARIN [Concomitant]

REACTIONS (10)
  - BRONCHITIS [None]
  - EYE SWELLING [None]
  - FACE OEDEMA [None]
  - HYPERSENSITIVITY [None]
  - LATEX ALLERGY [None]
  - PRURITUS [None]
  - RASH GENERALISED [None]
  - SINUSITIS [None]
  - URTICARIA [None]
  - WHEEZING [None]
